FAERS Safety Report 22172091 (Version 2)
Quarter: 2024Q3

REPORT INFORMATION
  Report Type: Spontaneous
  Country: JP (occurrence: JP)
  Receive Date: 20230404
  Receipt Date: 20240801
  Transmission Date: 20241017
  Serious: Yes (Other)
  Sender: PFIZER
  Company Number: JP-PFIZER INC-PV202300057434

PATIENT
  Age: 8 Decade
  Sex: Female

DRUGS (1)
  1. METHOTREXATE SODIUM [Suspect]
     Active Substance: METHOTREXATE SODIUM
     Dosage: HIGH DOSES
     Route: 048

REACTIONS (2)
  - Hepatic fibrosis [Unknown]
  - Varices oesophageal [Unknown]
